FAERS Safety Report 7447928-6 (Version None)
Quarter: 2011Q2

REPORT INFORMATION
  Report Type: 
  Country: None (occurrence: None)
  Receive Date: 20110429
  Receipt Date: 20100325
  Transmission Date: 20111010
  Serious: No
  Sender: FDA-Public Use
  Company Number: US-ASTRAZENECA-2010SE13568

PATIENT
  Age: 749 Month
  Sex: Female

DRUGS (1)
  1. NEXIUM [Suspect]
     Route: 048
     Dates: start: 20020101

REACTIONS (4)
  - OESOPHAGITIS [None]
  - APHONIA [None]
  - DYSPHAGIA [None]
  - THROAT IRRITATION [None]
